FAERS Safety Report 19026747 (Version 2)
Quarter: 2021Q2

REPORT INFORMATION
  Report Type: Other
  Country: US (occurrence: US)
  Receive Date: 20210318
  Receipt Date: 20210407
  Transmission Date: 20210717
  Serious: No
  Sender: FDA-Public Use
  Company Number: US-ROCHE-2788038

PATIENT
  Age: 37 Year
  Sex: Male

DRUGS (2)
  1. OCREVUS [Suspect]
     Active Substance: OCRELIZUMAB
     Indication: MULTIPLE SCLEROSIS
     Dosage: TREATMENT DATES: 30/APR/2018,14/MAY/2018,19/NOV/2018, 20/MAY/2019.?DATE OF NEXT INFUSION: 25/NOV/201
     Route: 065
     Dates: start: 2017, end: 20191125
  2. OCREVUS [Suspect]
     Active Substance: OCRELIZUMAB
     Route: 042

REACTIONS (1)
  - JC polyomavirus test positive [Not Recovered/Not Resolved]

NARRATIVE: CASE EVENT DATE: 20210302
